FAERS Safety Report 4486407-5 (Version None)
Quarter: 2004Q4

REPORT INFORMATION
  Report Type: 
  Country: None (occurrence: None)
  Receive Date: 20041027
  Receipt Date: 20041019
  Transmission Date: 20050328
  Serious: Yes (Hospitalization)
  Sender: FDA-Public Use
  Company Number: DE-ABBOTT-04P-062-0278278-00

PATIENT
  Sex: Male
  Weight: 92 kg

DRUGS (1)
  1. KLACID PRO [Suspect]
     Indication: PYELONEPHRITIS
     Route: 048
     Dates: start: 20040801, end: 20040806

REACTIONS (5)
  - ABDOMINAL PAIN UPPER [None]
  - DIARRHOEA [None]
  - DRUG ERUPTION [None]
  - HEPATITIS [None]
  - UNEVALUABLE EVENT [None]
